FAERS Safety Report 5513823-2 (Version None)
Quarter: 2007Q4

REPORT INFORMATION
  Report Type: 
  Country: None (occurrence: None)
  Receive Date: 20071113
  Receipt Date: 20071102
  Transmission Date: 20080405
  Serious: Yes (Hospitalization)
  Sender: FDA-Public Use
  Company Number: US-ELI_LILLY_AND_COMPANY-US200711000638

PATIENT
  Sex: Female

DRUGS (2)
  1. ZYPREXA [Suspect]
     Indication: BIPOLAR I DISORDER
     Dosage: 15 MG, 2/D
     Dates: start: 20040101
  2. DEPAKOTE [Concomitant]
     Dosage: 2 G, UNK
     Dates: start: 20040101

REACTIONS (7)
  - ASTHENIA [None]
  - CARDIAC DISORDER [None]
  - FALL [None]
  - GAIT DISTURBANCE [None]
  - HOSPITALISATION [None]
  - OVERDOSE [None]
  - TREMOR [None]
